FAERS Safety Report 9540445 (Version 2)
Quarter: 2013Q4

REPORT INFORMATION
  Report Type: Spontaneous
  Country: CN (occurrence: CN)
  Receive Date: 20130920
  Receipt Date: 20131015
  Transmission Date: 20140711
  Serious: Yes (Other)
  Sender: FDA-Public Use
  Company Number: CN-GLAXOSMITHKLINE-B0923934A

PATIENT
  Age: 49 Year
  Sex: Female

DRUGS (1)
  1. SERETIDE [Suspect]
     Indication: ASTHMA
     Route: 055
     Dates: start: 2010

REACTIONS (8)
  - Fungal oesophagitis [Recovered/Resolved]
  - Oesophageal candidiasis [Recovered/Resolved]
  - Candida infection [Unknown]
  - Oesophageal haemorrhage [Unknown]
  - Erosive oesophagitis [Unknown]
  - Odynophagia [Unknown]
  - Oesophageal oedema [Unknown]
  - Ill-defined disorder [Unknown]
